FAERS Safety Report 6955375-6 (Version None)
Quarter: 2010Q3

REPORT INFORMATION
  Report Type: 
  Country: None (occurrence: None)
  Receive Date: 20100830
  Receipt Date: 20091208
  Transmission Date: 20110219
  Serious: No
  Sender: FDA-Public Use
  Company Number: US-MYLANLABS-2009S1021150

PATIENT
  Age: 84 Year
  Sex: Female
  Weight: 53.07 kg

DRUGS (1)
  1. LISINOPRIL [Suspect]
     Indication: BLOOD PRESSURE INCREASED
     Route: 048
     Dates: start: 20091205

REACTIONS (5)
  - BLOOD PRESSURE INCREASED [None]
  - DRUG EFFECT DECREASED [None]
  - FEELING ABNORMAL [None]
  - PARAESTHESIA [None]
  - REACTION TO DRUG EXCIPIENTS [None]
